FAERS Safety Report 14079460 (Version 2)
Quarter: 2017Q4

REPORT INFORMATION
  Report Type: Spontaneous
  Country: US (occurrence: US)
  Receive Date: 20171012
  Receipt Date: 20171101
  Transmission Date: 20180321
  Serious: Yes (Death, Other)
  Sender: FDA-Public Use
  Company Number: US-PFIZER INC-2017440492

PATIENT
  Age: 75 Year
  Sex: Male

DRUGS (1)
  1. LYRICA [Suspect]
     Active Substance: PREGABALIN
     Dosage: 50 MG, 2X/DAY
     Route: 048
     Dates: start: 2016

REACTIONS (7)
  - Choking [Unknown]
  - Dementia Alzheimer^s type [Fatal]
  - Intentional product misuse [Unknown]
  - Feeding disorder [Unknown]
  - Condition aggravated [Fatal]
  - Dysphagia [Unknown]
  - Weight decreased [Unknown]

NARRATIVE: CASE EVENT DATE: 2017
